FAERS Safety Report 8273406-0 (Version None)
Quarter: 2012Q2

REPORT INFORMATION
  Report Type: 
  Country: None (occurrence: None)
  Receive Date: 20120411
  Receipt Date: 20120410
  Transmission Date: 20120825
  Serious: Yes (Death)
  Sender: FDA-Public Use
  Company Number: PHHY2012NL024163

PATIENT
  Sex: Male

DRUGS (2)
  1. ZOMETA [Suspect]
     Indication: PROSTATE CANCER METASTATIC
     Dosage: 4 MG/100ML 1X PER 35 DAYS
     Dates: start: 20110113
  2. ZOMETA [Suspect]
     Dosage: 4 MG/100ML 1X PER 35 DAYS
     Dates: start: 20120216, end: 20120216

REACTIONS (3)
  - NEOPLASM MALIGNANT [None]
  - CACHEXIA [None]
  - NEOPLASM PROGRESSION [None]
